FAERS Safety Report 5130058-6 (Version None)
Quarter: 2006Q4

REPORT INFORMATION
  Report Type: 
  Country: None (occurrence: None)
  Receive Date: 20061013
  Receipt Date: 20060925
  Transmission Date: 20070319
  Serious: Yes (Hospitalization, Other)
  Sender: FDA-Public Use
  Company Number: US200609006372

PATIENT
  Sex: Female

DRUGS (2)
  1. FORTEO [Suspect]
     Indication: OSTEOPOROSIS
     Dates: start: 20060101, end: 20060701
  2. FORTEO PEN (FORETO PEN) PEN, DISPOSABLE [Concomitant]

REACTIONS (6)
  - DEHYDRATION [None]
  - GASTROENTERITIS SALMONELLA [None]
  - LOSS OF CONSCIOUSNESS [None]
  - MALNUTRITION [None]
  - PHARMACEUTICAL PRODUCT COMPLAINT [None]
  - RENAL FAILURE [None]
